FAERS Safety Report 8342731-7 (Version None)
Quarter: 2012Q2

REPORT INFORMATION
  Report Type: 
  Country: None (occurrence: None)
  Receive Date: 20120503
  Receipt Date: 20111019
  Transmission Date: 20120825
  Serious: Yes (Hospitalization)
  Sender: FDA-Public Use
  Company Number: GB-024096

PATIENT
  Age: 80 Year
  Sex: Male

DRUGS (4)
  1. (RITUXIMAB) [Suspect]
     Indication: CHRONIC LYMPHOCYTIC LEUKAEMIA
     Dosage: 675 MG INTRAVENOUS (NOT OTHERWISE SPECIFIED)
     Route: 042
     Dates: start: 20110825
  2. (CHLORAMBUCIL) [Suspect]
     Indication: CHRONIC LYMPHOCYTIC LEUKAEMIA
     Dosage: 18 MG QD ORAL
     Route: 048
     Dates: start: 20110825
  3. METOCLOPRAMIDE [Concomitant]
  4. ALLOPURINOL [Concomitant]

REACTIONS (4)
  - HAEMOGLOBIN DECREASED [None]
  - LOWER URINARY TRACT SYMPTOMS [None]
  - PLATELET COUNT INCREASED [None]
  - INFECTION [None]
